FAERS Safety Report 6366244-7 (Version None)
Quarter: 2009Q3

REPORT INFORMATION
  Report Type: 
  Country: None (occurrence: None)
  Receive Date: 20090921
  Receipt Date: 20090909
  Transmission Date: 20100115
  Serious: Yes (Hospitalization, Other)
  Sender: FDA-Public Use
  Company Number: CA-JNJFOC-20090903840

PATIENT
  Sex: Female
  Weight: 70.4 kg

DRUGS (1)
  1. REMICADE [Suspect]
     Indication: RHEUMATOID ARTHRITIS
     Dosage: 60 DOSES
     Route: 042

REACTIONS (2)
  - OESOPHAGEAL DISORDER [None]
  - OESOPHAGEAL HAEMORRHAGE [None]
